FAERS Safety Report 20513950 (Version 1)
Quarter: 2022Q1

REPORT INFORMATION
  Report Type: Spontaneous
  Country: JP (occurrence: None)
  Receive Date: 20220224
  Receipt Date: 20220224
  Transmission Date: 20220423
  Serious: Yes (Hospitalization, Other)
  Sender: FDA-Public Use
  Company Number: 2022A074962

PATIENT
  Age: 75 Year
  Sex: Male

DRUGS (4)
  1. DURVALUMAB [Suspect]
     Active Substance: DURVALUMAB
     Indication: Non-small cell lung cancer stage IIIB
     Dosage: FOUR CYCLES
     Route: 042
  2. METHYLPREDNISOLONE [Concomitant]
     Active Substance: METHYLPREDNISOLONE
     Dosage: 500 MG/DAY FOR THREE CONSECUTIVE DAYS
  3. PREDNISOLONE [Concomitant]
     Active Substance: PREDNISOLONE
     Dosage: 0.8 MG/KG/DAY (50 MG)
  4. PREDNISOLONE [Concomitant]
     Active Substance: PREDNISOLONE
     Dosage: 40 MG/DAY, FOLLOWED BY 35 MG/DAY ONE WEEK LATER

REACTIONS (1)
  - Glomerulonephritis minimal lesion [Recovering/Resolving]
